FAERS Safety Report 9423082 (Version 2)
Quarter: 2013Q3

REPORT INFORMATION
  Report Type: Spontaneous
  Country: US (occurrence: US)
  Receive Date: 20130726
  Receipt Date: 20130730
  Transmission Date: 20140515
  Serious: Yes (Hospitalization)
  Sender: FDA-Public Use
  Company Number: US-GLAXOSMITHKLINE-B0911083A

PATIENT
  Age: 64 Year
  Sex: Male

DRUGS (1)
  1. AVANDIA [Suspect]
     Indication: DIABETES MELLITUS
     Dosage: 4MG TWICE PER DAY
     Route: 048
     Dates: start: 20051111, end: 20070102

REACTIONS (8)
  - Myocardial infarction [Not Recovered/Not Resolved]
  - Cerebrovascular accident [Unknown]
  - Coronary artery occlusion [Unknown]
  - Coronary arterial stent insertion [Unknown]
  - Dizziness [Unknown]
  - Anxiety [Unknown]
  - Nervousness [Unknown]
  - Myocardial ischaemia [Unknown]
